FAERS Safety Report 7486049-3 (Version None)
Quarter: 2011Q2

REPORT INFORMATION
  Report Type: 
  Country: None (occurrence: None)
  Receive Date: 20110517
  Receipt Date: 20110510
  Transmission Date: 20111010
  Serious: Yes (Hospitalization, Other)
  Sender: FDA-Public Use
  Company Number: FR-PFIZER INC-2011099421

PATIENT
  Age: 10 Year
  Sex: Male
  Weight: 34 kg

DRUGS (14)
  1. LYRICA [Suspect]
     Indication: NEURALGIA
     Dosage: 200 MG, 2X/DAY
     Route: 048
     Dates: start: 20110201, end: 20110308
  2. ATARAX [Concomitant]
     Dosage: 12.5 MG, 2X/DAY
  3. ETOPOSIDE [Suspect]
     Dosage: 110 MG, 1X/DAY
     Route: 042
     Dates: start: 20110124, end: 20110128
  4. CARBOPLATIN [Suspect]
     Dosage: 180 MG, 1X/DAY
     Route: 042
     Dates: start: 20110124, end: 20110128
  5. CARBOPLATIN [Suspect]
     Dosage: 180 MG, 1X/DAY
     Route: 042
     Dates: start: 20110214, end: 20110218
  6. PLITICAN [Concomitant]
     Dosage: 30 MG, 3X/DAY
  7. TRAMADOL HCL [Concomitant]
     Indication: NEURALGIA
     Dosage: 50 MG, 3X/DAY
     Dates: start: 20110201
  8. ETOPOSIDE [Suspect]
     Dosage: 110 MG, 1X/DAY
     Route: 042
     Dates: start: 20110214, end: 20110218
  9. BACTRIM [Concomitant]
     Dosage: 800MG 3 TIMES WEEKLY
  10. ONDANSERTRON HYDROCHLORIDE [Concomitant]
     Dosage: 8 MG, 2X/DAY
  11. CLONAZEPAM [Concomitant]
     Indication: NEURALGIA
     Dosage: UNK
     Dates: start: 20110201
  12. NEUPOGEN [Concomitant]
  13. AMITRIPTYLINE HCL [Concomitant]
     Indication: NEURALGIA
     Dosage: 9 GTT, 2X/DAY
     Dates: start: 20110201
  14. LANSOYL [Concomitant]

REACTIONS (3)
  - KERATITIS [None]
  - VISUAL ACUITY REDUCED [None]
  - CONDITION AGGRAVATED [None]
